FAERS Safety Report 6239018-5 (Version None)
Quarter: 2009Q2

REPORT INFORMATION
  Report Type: 
  Country: None (occurrence: None)
  Receive Date: 20090622
  Receipt Date: 20090617
  Transmission Date: 20091009
  Serious: Yes (Hospitalization)
  Sender: FDA-Public Use
  Company Number: B0579353A

PATIENT
  Sex: Female

DRUGS (7)
  1. AUGMENTIN '125' [Suspect]
     Indication: BRONCHITIS
     Dosage: 1G TWICE PER DAY
     Route: 048
     Dates: start: 20090119, end: 20090122
  2. PREVISCAN [Suspect]
     Route: 048
     Dates: end: 20090120
  3. HEMIGOXINE NATIVELLE [Concomitant]
     Dosage: .125MG PER DAY
     Route: 048
     Dates: end: 20090122
  4. TEMESTA [Concomitant]
     Indication: ANXIETY
     Dosage: 1MG PER DAY
     Route: 048
     Dates: end: 20090122
  5. CORTANCYL [Concomitant]
     Indication: INFLAMMATION
     Dosage: 40MG PER DAY
     Route: 048
     Dates: start: 20090119, end: 20090122
  6. VASTAREL [Concomitant]
     Indication: VERTIGO
     Dosage: 35MG TWICE PER DAY
     Route: 048
     Dates: end: 20090122
  7. ULTRALEVURE [Concomitant]
     Dosage: 3UNIT TWICE PER DAY
     Route: 048
     Dates: start: 20090119, end: 20090122

REACTIONS (4)
  - ACCIDENTAL OVERDOSE [None]
  - DRUG INTERACTION [None]
  - INTERNATIONAL NORMALISED RATIO INCREASED [None]
  - MUSCLE HAEMORRHAGE [None]
